FAERS Safety Report 18028039 (Version 2)
Quarter: 2020Q3

REPORT INFORMATION
  Report Type: Spontaneous
  Country: US (occurrence: US)
  Receive Date: 20200715
  Receipt Date: 20200721
  Transmission Date: 20201103
  Serious: No
  Sender: FDA-Public Use
  Company Number: US-BIOGEN-2020BI00897346

PATIENT
  Sex: Female

DRUGS (1)
  1. TYSABRI [Suspect]
     Active Substance: NATALIZUMAB
     Indication: MULTIPLE SCLEROSIS
     Route: 065
     Dates: start: 20200228

REACTIONS (7)
  - Dyskinesia [Unknown]
  - Aphasia [Unknown]
  - Tremor [Unknown]
  - Hypoaesthesia [Unknown]
  - Dysarthria [Unknown]
  - Gait inability [Unknown]
  - Asthenia [Unknown]
